FAERS Safety Report 10952054 (Version 1)
Quarter: 2015Q1

REPORT INFORMATION
  Report Type: Spontaneous
  Country: US (occurrence: None)
  Receive Date: 20150324
  Receipt Date: 20150324
  Transmission Date: 20150721
  Serious: No
  Sender: FDA-Public Use
  Company Number: None

PATIENT
  Age: 88 Year
  Sex: Female

DRUGS (13)
  1. AMLODIPINE [Concomitant]
     Active Substance: AMLODIPINE BESYLATE
  2. VITAMIN D3 [Concomitant]
     Active Substance: CHOLECALCIFEROL
  3. IRON [Concomitant]
     Active Substance: IRON
  4. LANSOPRAZOLE. [Concomitant]
     Active Substance: LANSOPRAZOLE
  5. EQUATE COMPLETE [Concomitant]
     Active Substance: CALCIUM CARBONATE\FAMOTIDINE\MAGNESIUM HYDROXIDE
  6. CLOPIDOGREL [Concomitant]
     Active Substance: CLOPIDOGREL BISULFATE
  7. PREVIDENT [Suspect]
     Active Substance: SODIUM FLUORIDE
     Indication: DENTAL CARIES
     Dosage: ONCE DAILY AT BEDTIME.
     Dates: start: 20150211
  8. LATANPROST [Concomitant]
  9. TIMOLOL [Concomitant]
     Active Substance: TIMOLOL
  10. OFLOXACIN. [Concomitant]
     Active Substance: OFLOXACIN
  11. CRESTOR [Concomitant]
     Active Substance: ROSUVASTATIN CALCIUM
  12. VITAMINS [Concomitant]
     Active Substance: VITAMINS
  13. 81 ASPIRIN [Concomitant]

REACTIONS (1)
  - Back pain [None]

NARRATIVE: CASE EVENT DATE: 20150215
